FAERS Safety Report 5959524-8 (Version None)
Quarter: 2008Q4

REPORT INFORMATION
  Report Type: 
  Country: None (occurrence: None)
  Receive Date: 20081118
  Receipt Date: 20081103
  Transmission Date: 20090506
  Serious: Yes (Hospitalization)
  Sender: FDA-Public Use
  Company Number: 2008S1020034

PATIENT
  Age: 28 Year
  Sex: Female

DRUGS (1)
  1. CLOMIPRAMINE HCL [Suspect]
     Indication: BORDERLINE PERSONALITY DISORDER
     Dosage: 4.5 GM; X1; ORAL
     Route: 048

REACTIONS (2)
  - BEZOAR [None]
  - INTENTIONAL DRUG MISUSE [None]
